FAERS Safety Report 10050470 (Version 1)
Quarter: 2014Q2

REPORT INFORMATION
  Report Type: Report from Study
  Country: EG (occurrence: EG)
  Receive Date: 20140401
  Receipt Date: 20140401
  Transmission Date: 20141212
  Serious: Yes (Death)
  Sender: FDA-Public Use
  Company Number: EG-SA-2014SA037006

PATIENT
  Age: 78 Year
  Sex: Male

DRUGS (1)
  1. LANTUS [Suspect]
     Indication: TYPE 2 DIABETES MELLITUS
     Route: 058
     Dates: start: 20131108, end: 20140215

REACTIONS (4)
  - Thrombosis [Fatal]
  - Condition aggravated [Fatal]
  - Gangrene [Fatal]
  - Condition aggravated [Fatal]
